FAERS Safety Report 5203359-0 (Version None)
Quarter: 2007Q1

REPORT INFORMATION
  Report Type: 
  Country: None (occurrence: None)
  Receive Date: 20070110
  Receipt Date: 20060105
  Transmission Date: 20070707
  Serious: Yes (Other)
  Sender: FDA-Public Use
  Company Number: US-JNJFOC-20041205690

PATIENT
  Sex: Female
  Weight: 54.43 kg

DRUGS (3)
  1. RISPERDAL [Suspect]
     Indication: MANIA
     Route: 048
  2. RISPERDAL [Suspect]
     Indication: PSYCHOTIC DISORDER
     Route: 048
  3. DEPAKOTE [Concomitant]
     Indication: MANIA
     Route: 048

REACTIONS (1)
  - CARDIOMYOPATHY [None]
